FAERS Safety Report 4984786-3 (Version None)
Quarter: 2006Q2

REPORT INFORMATION
  Report Type: 
  Country: None (occurrence: None)
  Receive Date: 20060427
  Receipt Date: 20051215
  Transmission Date: 20061013
  Serious: Yes (Hospitalization, Other)
  Sender: FDA-Public Use
  Company Number: US-MERCK-0512USA02572

PATIENT
  Age: 72 Year
  Sex: Male
  Weight: 94 kg

DRUGS (15)
  1. VIOXX [Suspect]
     Indication: ARTHRALGIA
     Route: 048
     Dates: start: 20000107, end: 20040927
  2. ZIAC [Concomitant]
     Route: 065
  3. OXYCODONE [Concomitant]
     Indication: PAIN
     Route: 065
     Dates: start: 20000215, end: 20000320
  4. FERROUS SULFATE [Concomitant]
     Indication: IRON DEFICIENCY
     Route: 065
     Dates: start: 19980101
  5. VISICOL [Concomitant]
     Route: 065
  6. ZITHROMAX [Concomitant]
     Route: 065
  7. DIPHENOXYLATE [Concomitant]
     Route: 065
  8. LEVAQUIN [Concomitant]
     Route: 065
  9. ACIPHEX [Concomitant]
     Indication: GASTRIC DISORDER
     Route: 065
  10. VIAGRA [Concomitant]
     Indication: ERECTILE DYSFUNCTION
     Route: 065
  11. BIAXIN [Concomitant]
     Route: 065
  12. PEPCID [Concomitant]
     Indication: GASTRIC DISORDER
     Route: 048
  13. PROPULSID [Concomitant]
     Indication: GASTRIC DISORDER
     Route: 065
  14. TUSSIN V [Concomitant]
     Route: 065
  15. PROMETHAZINE [Concomitant]
     Route: 065

REACTIONS (14)
  - ARTHROPATHY [None]
  - BLOOD CHOLESTEROL INCREASED [None]
  - CEREBROVASCULAR ACCIDENT [None]
  - CHEST PAIN [None]
  - COLON CANCER [None]
  - CORONARY ARTERY DISEASE [None]
  - DYSPNOEA [None]
  - GASTROOESOPHAGEAL REFLUX DISEASE [None]
  - GLAUCOMA [None]
  - HAEMORRHOIDS [None]
  - HYPERTENSION [None]
  - INTERVERTEBRAL DISC DEGENERATION [None]
  - THYROID NEOPLASM [None]
  - VERTIGO [None]
